FAERS Safety Report 22536743 (Version 2)
Quarter: 2023Q2

REPORT INFORMATION
  Report Type: Spontaneous
  Country: US (occurrence: US)
  Receive Date: 20230608
  Receipt Date: 20230621
  Transmission Date: 20230721
  Serious: Yes (Death, Hospitalization, Other)
  Sender: FDA-Public Use
  Company Number: US-VERTEX PHARMACEUTICALS-2023-007729

PATIENT
  Sex: Female
  Weight: 72 kg

DRUGS (2)
  1. TRIKAFTA [Suspect]
     Active Substance: ELEXACAFTOR\IVACAFTOR\TEZACAFTOR
     Indication: Cystic fibrosis
     Dosage: ELEXACAFTOR 100 MG/TEZACAFTOR 50 MG/IVACAFTOR75 MG AND IVACAFTOR 150 MG; 2 TABS AM 1 TAB PM
     Route: 048
  2. TRIKAFTA [Suspect]
     Active Substance: ELEXACAFTOR\IVACAFTOR\TEZACAFTOR
     Dosage: ELEXACAFTOR 50 MG/TEZACAFTOR 25 MG/IVACAFTOR 37.5 MG AND IVACAFTOR 75 MG; UNK FREQ
     Route: 048
     Dates: end: 202304

REACTIONS (7)
  - Pneumonia aspiration [Fatal]
  - Pneumonia pseudomonal [Fatal]
  - Hepatic encephalopathy [Fatal]
  - Bronchiectasis [Unknown]
  - Pneumomediastinum [Unknown]
  - Subcutaneous emphysema [Unknown]
  - Hypoventilation [Unknown]

NARRATIVE: CASE EVENT DATE: 20230101
